FAERS Safety Report 4818393-X (Version None)
Quarter: 2005Q4

REPORT INFORMATION
  Report Type: 
  Country: None (occurrence: None)
  Receive Date: 20051031
  Receipt Date: 20051023
  Transmission Date: 20060501
  Serious: Yes (Hospitalization)
  Sender: FDA-Public Use
  Company Number: 2005PV003441

PATIENT
  Sex: Female

DRUGS (2)
  1. BYETTA [Suspect]
     Dosage: 5 MCG;BID;SC
     Route: 058
     Dates: start: 20050101, end: 20050101
  2. LANTUS [Concomitant]

REACTIONS (3)
  - ACIDOSIS [None]
  - BLOOD GLUCOSE INCREASED [None]
  - DEHYDRATION [None]
